FAERS Safety Report 5734882-8 (Version None)
Quarter: 2008Q2

REPORT INFORMATION
  Report Type: 
  Country: None (occurrence: None)
  Receive Date: 20080512
  Receipt Date: 20080507
  Transmission Date: 20081010
  Serious: Yes (Hospitalization, Other)
  Sender: FDA-Public Use
  Company Number: B0508540A

PATIENT
  Age: 51 Year
  Sex: Female
  Weight: 57 kg

DRUGS (2)
  1. TYVERB [Suspect]
     Dosage: 1250MG PER DAY
     Route: 048
     Dates: start: 20070919
  2. XELODA [Suspect]
     Dosage: 2000MG PER DAY
     Route: 048
     Dates: start: 20070919

REACTIONS (6)
  - ASTHENIA [None]
  - DIARRHOEA [None]
  - HEMIPLEGIA [None]
  - HYPOKALAEMIA [None]
  - TACHYPNOEA [None]
  - TRANSIENT ISCHAEMIC ATTACK [None]
